FAERS Safety Report 21537331 (Version 2)
Quarter: 2022Q4

REPORT INFORMATION
  Report Type: Report from Study
  Country: US (occurrence: US)
  Receive Date: 20221101
  Receipt Date: 20221114
  Transmission Date: 20230112
  Serious: Yes (Hospitalization, Other)
  Sender: FDA-Public Use
  Company Number: US-PFIZER INC-PV202200091718

PATIENT
  Sex: Male
  Weight: 87.07 kg

DRUGS (3)
  1. INLYTA [Suspect]
     Active Substance: AXITINIB
     Indication: Renal cell carcinoma
     Dosage: UNK
     Route: 065
  2. CABOMETYX [Suspect]
     Active Substance: CABOZANTINIB S-MALATE
     Indication: Renal cell carcinoma
     Dosage: 20 MG, QD
     Route: 048
     Dates: start: 20210827
  3. KEYTRUDA [Suspect]
     Active Substance: PEMBROLIZUMAB
     Indication: Renal cell carcinoma
     Dosage: UNK
     Route: 065

REACTIONS (12)
  - Supraventricular tachycardia [Unknown]
  - Myocarditis [Unknown]
  - Cardiomyopathy [Unknown]
  - Left ventricular hypertrophy [Unknown]
  - Hepatic failure [Unknown]
  - Arthritis [Unknown]
  - Headache [Unknown]
  - Blood pressure increased [Unknown]
  - Asthenia [Unknown]
  - Decreased appetite [Unknown]
  - Arthralgia [Unknown]
  - Dysphonia [Unknown]
